FAERS Safety Report 21605469 (Version 2)
Quarter: 2022Q4

REPORT INFORMATION
  Report Type: Spontaneous
  Country: JP (occurrence: JP)
  Receive Date: 20221116
  Receipt Date: 20221130
  Transmission Date: 20230113
  Serious: Yes (Hospitalization, Other)
  Sender: FDA-Public Use
  Company Number: JP-BAUSCHBL-2022BNL001491

PATIENT
  Age: 83 Year
  Sex: Male

DRUGS (1)
  1. CARTEOLOL HYDROCHLORIDE [Suspect]
     Active Substance: CARTEOLOL HYDROCHLORIDE
     Indication: Product used for unknown indication
     Route: 047

REACTIONS (1)
  - Pneumonia aspiration [Unknown]
